FAERS Safety Report 10996873 (Version 1)
Quarter: 2015Q2

REPORT INFORMATION
  Report Type: Spontaneous
  Country: US (occurrence: None)
  Receive Date: 20150407
  Receipt Date: 20150407
  Transmission Date: 20150821
  Serious: Yes (Hospitalization, Other)
  Sender: FDA-Public Use
  Company Number: None

PATIENT
  Age: 43 Year
  Sex: Female
  Weight: 65.77 kg

DRUGS (2)
  1. CIPROFLOXACIN. [Suspect]
     Active Substance: CIPROFLOXACIN
     Indication: PROPHYLAXIS
     Dosage: 1 PILL
     Route: 048
     Dates: start: 20130411, end: 20130426
  2. CIPROFLOXACIN. [Suspect]
     Active Substance: CIPROFLOXACIN
     Indication: CYSTITIS
     Dosage: 1 PILL
     Route: 048
     Dates: start: 20130411, end: 20130426

REACTIONS (5)
  - Sleep disorder [None]
  - Tendon rupture [None]
  - Quality of life decreased [None]
  - Arthralgia [None]
  - Decreased activity [None]

NARRATIVE: CASE EVENT DATE: 20130411
